FAERS Safety Report 8825860 (Version 3)
Quarter: 2013Q1

REPORT INFORMATION
  Report Type: Report from Study
  Country: CO (occurrence: CO)
  Receive Date: 20121005
  Receipt Date: 20130327
  Transmission Date: 20140127
  Serious: Yes (Other)
  Sender: FDA-Public Use
  Company Number: CO-ASTELLAS-2012US009745

PATIENT
  Age: 57 Year
  Sex: Female

DRUGS (3)
  1. ERLOTINIB TABLET [Suspect]
     Indication: LUNG NEOPLASM MALIGNANT
     Dosage: 150 MG, UID/QD
     Route: 048
     Dates: start: 20120701
  2. CAPTOPRIL [Concomitant]
     Indication: HYPERTENSION
     Dosage: UNK
     Route: 065
  3. OMEPRAZOL                          /00661201/ [Concomitant]
     Indication: GASTRITIS
     Dosage: UNK
     Route: 065

REACTIONS (4)
  - Vascular purpura [Recovered/Resolved]
  - Pleural effusion [Recovered/Resolved]
  - Staphylococcal infection [Recovered/Resolved]
  - Pneumonia [Recovered/Resolved]
